FAERS Safety Report 9106163 (Version 2)
Quarter: 2013Q1

REPORT INFORMATION
  Report Type: Spontaneous
  Country: US (occurrence: US)
  Receive Date: 20130221
  Receipt Date: 20130311
  Transmission Date: 20140127
  Serious: No
  Sender: FDA-Public Use
  Company Number: US-ASTRAZENECA-2013SE07367

PATIENT
  Age: 77 Year
  Sex: Female
  Weight: 106.6 kg

DRUGS (2)
  1. TOPROL XL [Suspect]
     Indication: CARDIAC FAILURE
     Route: 048
     Dates: start: 2007
  2. TOPROL XL [Suspect]
     Indication: CARDIAC FAILURE
     Dosage: BY PAR
     Route: 048

REACTIONS (5)
  - Heart rate increased [Recovered/Resolved]
  - Tremor [Recovered/Resolved]
  - Dizziness [Recovered/Resolved]
  - Palpitations [Recovered/Resolved]
  - Dysgeusia [Recovered/Resolved]
